FAERS Safety Report 11604001 (Version 1)
Quarter: 2015Q4

REPORT INFORMATION
  Report Type: Spontaneous
  Country: CH (occurrence: CH)
  Receive Date: 20151007
  Receipt Date: 20151007
  Transmission Date: 20160304
  Serious: Yes (Life-Threatening, Hospitalization, Disabling)
  Sender: FDA-Public Use
  Company Number: CH-SA-2015SA152573

PATIENT
  Age: 69 Year
  Sex: Male
  Weight: 79.4 kg

DRUGS (11)
  1. IMODIUM [Concomitant]
     Active Substance: LOPERAMIDE HYDROCHLORIDE
     Route: 048
  2. PRADIF [Concomitant]
     Route: 048
  3. ASPIRIN CARDIO [Concomitant]
     Active Substance: ASPIRIN
     Indication: CORONARY ARTERY DISEASE
     Route: 048
  4. CRESTOR [Concomitant]
     Active Substance: ROSUVASTATIN CALCIUM
     Route: 048
  5. ZOLPIDEM [Concomitant]
     Active Substance: ZOLPIDEM\ZOLPIDEM TARTRATE
     Dosage: 0.5 PER 1 DAY
  6. COAPROVEL [Suspect]
     Active Substance: HYDROCHLOROTHIAZIDE\IRBESARTAN
     Indication: HYPERTENSION
     Dosage: TAKING COAPROVEL  SINCE ATLEAST 2012, 150MG/12.5 MG COMPRIMES
     Route: 048
  7. PAROXETIN [Concomitant]
     Active Substance: PAROXETINE HYDROCHLORIDE
     Dosage: 2 PER 1 DAY
     Route: 048
  8. MOTILIUM [Concomitant]
     Active Substance: DOMPERIDONE
     Dosage: TABLETS, TONGUE SOLUBLE
     Route: 048
  9. VI-DE 3 [Concomitant]
     Active Substance: CHOLECALCIFEROL
     Dosage: FORM: LIQUID DROPS, FREQUENCY: 1 PER 1 DAY
     Route: 048
  10. TRAMAL [Concomitant]
     Active Substance: TRAMADOL
     Dosage: FORM: LIQUID DROPS
  11. TEMESTA [Concomitant]
     Active Substance: LORAZEPAM
     Dosage: 1.5 PER 1 DAY

REACTIONS (1)
  - Malabsorption [Recovered/Resolved]

NARRATIVE: CASE EVENT DATE: 20150521
